FAERS Safety Report 8507907-4 (Version None)
Quarter: 2012Q3

REPORT INFORMATION
  Report Type: 
  Country: None (occurrence: None)
  Receive Date: 20120713
  Receipt Date: 20120627
  Transmission Date: 20120928
  Serious: Yes (Other)
  Sender: FDA-Public Use
  Company Number: AE-US-EMD SERONO, INC.-7142878

PATIENT
  Age: 31 Year
  Sex: Female

DRUGS (3)
  1. ESTRADIOL VALERATE [Concomitant]
     Indication: HORMONE REPLACEMENT THERAPY
     Route: 048
  2. RECOMBINANT HUMAN FOLLICLE-STIMULATING HORMONE (R-HFSH) [Suspect]
     Indication: PRODUCT USED FOR UNKNOWN INDICATION
  3. PROGESTERONE [Concomitant]
     Indication: HORMONE REPLACEMENT THERAPY

REACTIONS (2)
  - PREMATURE RUPTURE OF MEMBRANES [None]
  - MATERNAL EXPOSURE BEFORE PREGNANCY [None]
